FAERS Safety Report 21568246 (Version 2)
Quarter: 2022Q4

REPORT INFORMATION
  Report Type: Report from Study
  Country: DE (occurrence: None)
  Receive Date: 20221108
  Receipt Date: 20221117
  Transmission Date: 20230113
  Serious: Yes (Hospitalization)
  Sender: FDA-Public Use
  Company Number: DE-Merck Healthcare KGaA-9361568

PATIENT
  Age: 54 Year
  Sex: Female
  Weight: 105 kg

DRUGS (12)
  1. AVELUMAB [Suspect]
     Active Substance: AVELUMAB
     Indication: Cervix carcinoma
     Route: 042
     Dates: start: 20221011, end: 20221011
  2. CABOZANTINIB [Suspect]
     Active Substance: CABOZANTINIB
     Indication: Cervix carcinoma
     Dates: start: 20221012
  3. CABOZANTINIB [Suspect]
     Active Substance: CABOZANTINIB
     Dosage: THERAPY END DATE 26 OCT 2022
     Dates: start: 20221025, end: 202210
  4. CANDESARTAN [Concomitant]
     Active Substance: CANDESARTAN
     Indication: Product used for unknown indication
     Dates: start: 2022
  5. BISOPROLOL [Concomitant]
     Active Substance: BISOPROLOL
     Indication: Product used for unknown indication
     Dates: start: 2022
  6. ASPIRIN [Concomitant]
     Active Substance: ASPIRIN
     Indication: Product used for unknown indication
     Dosage: 100
     Dates: start: 2021
  7. LEVOTHYROXINE SODIUM [Concomitant]
     Active Substance: LEVOTHYROXINE SODIUM
     Indication: Product used for unknown indication
     Dates: start: 1990
  8. LIOTHYRONINE HYDROCHLORIDE [Concomitant]
     Active Substance: LIOTHYRONINE HYDROCHLORIDE
     Indication: Product used for unknown indication
     Dates: start: 1990
  9. ATORVASTATIN [Concomitant]
     Active Substance: ATORVASTATIN
     Indication: Product used for unknown indication
     Dates: start: 2012
  10. SELEN [SELENIUM] [Concomitant]
     Indication: Product used for unknown indication
     Dates: start: 2018
  11. VITAMIN K2 + D3 [COLECALCIFEROL;MENAQUINONE] [Concomitant]
     Indication: Product used for unknown indication
     Dosage: DOSAGE: 20000 (UNITS NOT REPORTED), 2 UNITS
     Dates: start: 2018
  12. MAGNESIUM [Concomitant]
     Active Substance: MAGNESIUM
     Indication: Product used for unknown indication
     Dates: start: 2021

REACTIONS (1)
  - Thrombocytopenia [Recovered/Resolved]

NARRATIVE: CASE EVENT DATE: 20221025
